FAERS Safety Report 12681139 (Version 1)
Quarter: 2016Q3

REPORT INFORMATION
  Report Type: Spontaneous
  Country: US (occurrence: US)
  Receive Date: 20160824
  Receipt Date: 20160824
  Transmission Date: 20161109
  Serious: No
  Sender: FDA-Public Use
  Company Number: US-FRI-1000081757

PATIENT
  Age: 2 Decade
  Sex: Female

DRUGS (2)
  1. PRISTIQ EXTENDED-RELEASE [Suspect]
     Active Substance: DESVENLAFAXINE SUCCINATE
     Indication: MAJOR DEPRESSION
     Route: 048
  2. LEXAPRO [Suspect]
     Active Substance: ESCITALOPRAM OXALATE

REACTIONS (1)
  - Panic attack [Unknown]
